FAERS Safety Report 14572962 (Version 1)
Quarter: 2018Q1

REPORT INFORMATION
  Report Type: Spontaneous
  Country: US (occurrence: US)
  Receive Date: 20180226
  Receipt Date: 20180226
  Transmission Date: 20180509
  Serious: Yes (Hospitalization, Other)
  Sender: FDA-Public Use
  Company Number: US-TELIGENT, INC-IGIL20180093

PATIENT
  Age: 80 Year
  Sex: Female

DRUGS (1)
  1. TRIAMCINOLONE ACETONIDE. [Suspect]
     Active Substance: TRIAMCINOLONE ACETONIDE
     Indication: CYSTOID MACULAR OEDEMA
     Dosage: UNKNOWN
     Route: 031

REACTIONS (8)
  - Necrotising scleritis [Recovered/Resolved]
  - Eye inflammation [Unknown]
  - Scleral thinning [Unknown]
  - Ocular hyperaemia [Unknown]
  - Iridocyclitis [Recovered/Resolved]
  - Nocardiosis [Recovered/Resolved]
  - Eye pain [Recovering/Resolving]
  - Retinal detachment [Recovered/Resolved]
